FAERS Safety Report 6840687-7 (Version None)
Quarter: 2010Q2

REPORT INFORMATION
  Report Type: 
  Country: None (occurrence: None)
  Receive Date: 20100629
  Receipt Date: 20100527
  Transmission Date: 20101027
  Serious: No
  Sender: FDA-Public Use
  Company Number: US-WYE-H15440610

PATIENT
  Age: 53 Year
  Sex: Female
  Weight: 60.84 kg

DRUGS (6)
  1. PRISTIQ [Suspect]
     Indication: DEPRESSION
     Dosage: 50 MG 1X PER 1 DAY
     Dates: start: 20090901, end: 20091001
  2. EFFEXOR [Suspect]
     Indication: DEPRESSION
     Dosage: 25 MG 2X PER 1 DAY
     Dates: end: 20090901
  3. EFFEXOR [Suspect]
     Indication: DEPRESSION
     Dosage: 25 MG 2X PER 1 DAY
     Dates: start: 20090101, end: 20100501
  4. XANAX [Concomitant]
  5. ZETIA [Concomitant]
  6. ZYRTEC [Concomitant]

REACTIONS (8)
  - AGGRESSION [None]
  - DECREASED APPETITE [None]
  - DIZZINESS [None]
  - DRY MOUTH [None]
  - FEELING ABNORMAL [None]
  - HYPERHIDROSIS [None]
  - INSOMNIA [None]
  - WEIGHT INCREASED [None]
